FAERS Safety Report 12290891 (Version 3)
Quarter: 2016Q2

REPORT INFORMATION
  Report Type: Report from Study
  Country: CA (occurrence: CA)
  Receive Date: 20160421
  Receipt Date: 20160512
  Transmission Date: 20160815
  Serious: Yes (Other)
  Sender: FDA-Public Use
  Company Number: CA-ALEXION PHARMACEUTICALS INC-A201602773

PATIENT
  Age: 48 Year
  Sex: Female
  Weight: 70.3 kg

DRUGS (14)
  1. HYDROMORPHONE [Concomitant]
     Active Substance: HYDROMORPHONE
     Indication: PAIN
     Dosage: 5 MG, Q4H AS NEEDED
     Route: 048
     Dates: start: 20141111
  2. TAMSULOSIN [Concomitant]
     Active Substance: TAMSULOSIN
     Indication: NEPHROLITHIASIS
     Dosage: UNK
     Route: 065
     Dates: start: 20141111
  3. SOLIRIS [Suspect]
     Active Substance: ECULIZUMAB
     Dosage: 900 MG, EVERY 12 DAYS
     Route: 042
     Dates: start: 20120402
  4. ABREVA [Concomitant]
     Active Substance: DOCOSANOL
     Indication: ORAL HERPES
     Dosage: UNK, PRN ONE COAT APPLICATION ON LIP
     Route: 065
     Dates: start: 20120411
  5. FUCIDIN H                          /00524501/ [Concomitant]
     Indication: INFECTION
     Dosage: UNK, QID
     Route: 061
     Dates: start: 20130413
  6. CIPROFLOXACIN. [Concomitant]
     Active Substance: CIPROFLOXACIN
     Indication: PROPHYLAXIS
     Dosage: 250 MG, BID FOR 7 DAYS
     Route: 048
     Dates: start: 20141216
  7. SOLIRIS [Suspect]
     Active Substance: ECULIZUMAB
     Indication: PAROXYSMAL NOCTURNAL HAEMOGLOBINURIA
     Dosage: 600 MG, QW
     Route: 042
     Dates: start: 20111115, end: 20111208
  8. TYLENOL [Concomitant]
     Active Substance: ACETAMINOPHEN
     Indication: NASOPHARYNGITIS
  9. NAPROXEN. [Concomitant]
     Active Substance: NAPROXEN
     Indication: NEPHROLITHIASIS
     Dosage: UNK
     Route: 048
  10. FOLIC ACID. [Concomitant]
     Active Substance: FOLIC ACID
     Indication: PRODUCT USED FOR UNKNOWN INDICATION
     Dosage: 5 MG, QD
     Route: 048
     Dates: start: 20110902
  11. BENADRYL [Concomitant]
     Active Substance: DIPHENHYDRAMINE HYDROCHLORIDE
     Indication: PREMEDICATION
     Dosage: UNK, PRN
     Route: 065
     Dates: start: 201108
  12. SOLIRIS [Suspect]
     Active Substance: ECULIZUMAB
     Dosage: 900 MG, Q2W
     Route: 042
     Dates: start: 20111215, end: 20120322
  13. SOLIRIS [Suspect]
     Active Substance: ECULIZUMAB
     Dosage: 900 MG, Q2W
     Route: 042
     Dates: start: 20111228, end: 20120322
  14. TYLENOL [Concomitant]
     Active Substance: ACETAMINOPHEN
     Indication: PREMEDICATION
     Dosage: UNK, PRN
     Route: 065
     Dates: start: 201108

REACTIONS (2)
  - Palpitations [Recovered/Resolved]
  - Haemoglobin decreased [Recovered/Resolved]

NARRATIVE: CASE EVENT DATE: 20160404
